FAERS Safety Report 4431212-9 (Version None)
Quarter: 2004Q3

REPORT INFORMATION
  Report Type: 
  Country: None (occurrence: None)
  Receive Date: 20040823
  Receipt Date: 20040823
  Transmission Date: 20050211
  Serious: Yes (Death)
  Sender: FDA-Public Use
  Company Number: None

PATIENT
  Age: 83 Year
  Sex: Male

DRUGS (6)
  1. RISPERDAL [Suspect]
     Indication: MAJOR DEPRESSION
     Dosage: 2 MILLIG  QHS  ORAL
     Route: 048
     Dates: start: 20040719, end: 20040727
  2. REMERON [Concomitant]
  3. EFFEXOR XR [Concomitant]
  4. ASPIRIN [Concomitant]
  5. COLACE [Concomitant]
  6. ECT [Concomitant]

REACTIONS (1)
  - CEREBROVASCULAR ACCIDENT [None]
